FAERS Safety Report 8371704-3 (Version None)
Quarter: 2012Q2

REPORT INFORMATION
  Report Type: 
  Country: None (occurrence: None)
  Receive Date: 20120518
  Receipt Date: 20120510
  Transmission Date: 20120825
  Serious: Yes (Death, Hospitalization, Other)
  Sender: FDA-Public Use
  Company Number: JP-ROCHE-747356

PATIENT
  Sex: Male
  Weight: 64 kg

DRUGS (10)
  1. WARFARIN POTASSIUM [Suspect]
     Indication: DEEP VEIN THROMBOSIS
     Dosage: 2-3-MG/DAY
     Route: 048
  2. CODEINE PHOSPHATE [Concomitant]
     Indication: COUGH
     Route: 048
  3. MOBIC [Concomitant]
     Dosage: DOSAGE IS UNCERTAIN
     Route: 048
  4. VITAMIN B12 [Concomitant]
     Indication: NEUROPATHY PERIPHERAL
     Dosage: FORM; PERORAL AGENT
     Route: 048
  5. MEDICON [Concomitant]
     Indication: COUGH
     Route: 048
  6. RABEPRAZOLE SODIUM [Concomitant]
     Indication: GASTROOESOPHAGEAL REFLUX DISEASE
     Route: 048
  7. AVASTIN [Suspect]
     Indication: LUNG ADENOCARCINOMA METASTATIC
     Dosage: DOSE: 963 MG
     Route: 041
     Dates: start: 20101110, end: 20101110
  8. HEPARIN SODIUM [Suspect]
     Indication: DEEP VEIN THROMBOSIS
     Dosage: 10-20 KU/DAY
     Route: 041
  9. CALBLOCK [Concomitant]
     Indication: HYPERTENSION
     Route: 048
  10. TAXOTERE [Concomitant]
     Indication: LUNG ADENOCARCINOMA METASTATIC
     Route: 041
     Dates: start: 20101110, end: 20101110

REACTIONS (4)
  - EPISTAXIS [None]
  - HAEMOPTYSIS [None]
  - LIVER DISORDER [None]
  - DISEASE PROGRESSION [None]
